FAERS Safety Report 4825255-0 (Version None)
Quarter: 2005Q4

REPORT INFORMATION
  Report Type: 
  Country: None (occurrence: None)
  Receive Date: 20051109
  Receipt Date: 20051109
  Transmission Date: 20060501
  Serious: Yes (Other)
  Sender: FDA-Public Use
  Company Number: None

PATIENT
  Age: 61 Year
  Sex: Female

DRUGS (1)
  1. ENALAPRIL   5MG [Suspect]
     Indication: HYPERTENSION
     Dosage: 1 BY MOUTH DAILY
     Route: 048
     Dates: start: 20050825

REACTIONS (1)
  - VISION BLURRED [None]
